FAERS Safety Report 7276340-8 (Version None)
Quarter: 2011Q1

REPORT INFORMATION
  Report Type: 
  Country: None (occurrence: None)
  Receive Date: 20110204
  Receipt Date: 20110128
  Transmission Date: 20110831
  Serious: Yes (Other)
  Sender: FDA-Public Use
  Company Number: US-CEPHALON-2011000490

PATIENT
  Age: 74 Year
  Sex: Male
  Weight: 73 kg

DRUGS (8)
  1. FENTORA [Suspect]
     Indication: CANCER PAIN
     Route: 002
     Dates: start: 20110126, end: 20110127
  2. ZOFRAN [Concomitant]
     Dates: start: 20100801
  3. AVASTIN [Concomitant]
  4. ZOMETA [Concomitant]
  5. EFFEXOR [Concomitant]
     Dates: start: 20100801
  6. METHADONE HYDROCHLORIDE [Concomitant]
     Dates: start: 20100801
  7. CARVEDILOL [Concomitant]
  8. TRANSDERM SCOPE [Concomitant]
     Dates: start: 20110101

REACTIONS (6)
  - HALLUCINATION [None]
  - MALAISE [None]
  - DELUSION [None]
  - HYPOTENSION [None]
  - DRUG PRESCRIBING ERROR [None]
  - DRUG ADMINISTRATION ERROR [None]
